FAERS Safety Report 4915485-1 (Version None)
Quarter: 2006Q1

REPORT INFORMATION
  Report Type: 
  Country: None (occurrence: None)
  Receive Date: 20060217
  Receipt Date: 20050428
  Transmission Date: 20060701
  Serious: Yes (Hospitalization)
  Sender: FDA-Public Use
  Company Number: US-MERCK-0505USA00172

PATIENT
  Age: 62 Year
  Sex: Male
  Weight: 91 kg

DRUGS (2)
  1. VIOXX [Suspect]
     Indication: ARTHRITIS
     Route: 048
     Dates: start: 20000101, end: 20040101
  2. ASPIRIN [Concomitant]
     Route: 065

REACTIONS (10)
  - ANAEMIA [None]
  - ANGINA PECTORIS [None]
  - ANGINA UNSTABLE [None]
  - CARDIAC MURMUR [None]
  - CORONARY ARTERY DISEASE [None]
  - CORONARY ARTERY STENOSIS [None]
  - ECCHYMOSIS [None]
  - HAEMATOMA [None]
  - MYOCARDIAL ISCHAEMIA [None]
  - POST PROCEDURAL COMPLICATION [None]
